FAERS Safety Report 4433749-5 (Version None)
Quarter: 2004Q3

REPORT INFORMATION
  Report Type: 
  Country: None (occurrence: None)
  Receive Date: 20040825
  Receipt Date: 20040810
  Transmission Date: 20050211
  Serious: Yes (Congenital Anomaly)
  Sender: FDA-Public Use
  Company Number: 04P-163-0266400-00

PATIENT
  Age: 1 Day
  Sex: Female
  Weight: 3.1 kg

DRUGS (1)
  1. KALETRA [Suspect]
     Indication: DRUG EXPOSURE DURING PREGNANCY

REACTIONS (4)
  - CEREBELLAR HYPOPLASIA [None]
  - CEREBRAL DYSGENESIS [None]
  - DRUG EXPOSURE DURING PREGNANCY [None]
  - DYSPLASIA [None]
